FAERS Safety Report 13205973 (Version 1)
Quarter: 2017Q1

REPORT INFORMATION
  Report Type: Spontaneous
  Country: US (occurrence: US)
  Receive Date: 20170208
  Receipt Date: 20170208
  Transmission Date: 20170428
  Serious: Yes (Disabling)
  Sender: FDA-Public Use
  Company Number: None

PATIENT
  Age: 57 Year
  Sex: Female

DRUGS (4)
  1. CALCIUM [Concomitant]
     Active Substance: CALCIUM
  2. MULTIVITAMIN [Concomitant]
     Active Substance: VITAMINS
  3. VITAMIN B COMPLEX [Concomitant]
     Active Substance: CYANOCOBALAMIN\DEXPANTHENOL\NIACINAMIDE\PYRIDOXINE HYDROCHLORIDE\RIBOFLAVIN 5^-PHOSPHATE SODIUM\THIAMINE HYDROCHLORIDE\VITAMIN B COMPLEX
  4. HARVONI [Suspect]
     Active Substance: LEDIPASVIR\SOFOSBUVIR
     Indication: HEPATITIS C

REACTIONS (13)
  - Gastrointestinal disorder [None]
  - Diarrhoea [None]
  - Hot flush [None]
  - Abdominal pain upper [None]
  - Hypertension [None]
  - Nausea [None]
  - Vertigo [None]
  - Vomiting [None]
  - Anxiety [None]
  - Fatigue [None]
  - Sinus pain [None]
  - Headache [None]
  - Paranasal sinus discomfort [None]

NARRATIVE: CASE EVENT DATE: 20170102
